FAERS Safety Report 7327675-1 (Version None)
Quarter: 2011Q1

REPORT INFORMATION
  Report Type: 
  Country: None (occurrence: None)
  Receive Date: 20110303
  Receipt Date: 20100909
  Transmission Date: 20110831
  Serious: Yes (Other)
  Sender: FDA-Public Use
  Company Number: US-BAYER-201012283NA

PATIENT
  Sex: Female
  Weight: 70.295 kg

DRUGS (3)
  1. ALBUTEROL [Concomitant]
     Indication: ASTHMA
  2. YASMIN [Suspect]
     Indication: PRODUCT USED FOR UNKNOWN INDICATION
     Dates: start: 20080201, end: 20080801
  3. YAZ [Suspect]
     Indication: CONTRACEPTION
     Dosage: UNK UNK, QD
     Dates: start: 20080101, end: 20090601

REACTIONS (7)
  - CHOLECYSTITIS CHRONIC [None]
  - NAUSEA [None]
  - PAIN [None]
  - ABDOMINAL PAIN UPPER [None]
  - ABDOMINAL PAIN [None]
  - GASTROOESOPHAGEAL REFLUX DISEASE [None]
  - VOMITING [None]
